FAERS Safety Report 20105381 (Version 6)
Quarter: 2022Q1

REPORT INFORMATION
  Report Type: Spontaneous
  Country: US (occurrence: US)
  Receive Date: 20211124
  Receipt Date: 20220222
  Transmission Date: 20220423
  Serious: No
  Sender: FDA-Public Use
  Company Number: US-UNITED THERAPEUTICS-UNT-2021-023883

PATIENT
  Sex: Female
  Weight: 62.585 kg

DRUGS (5)
  1. TYVASO [Suspect]
     Active Substance: TREPROSTINIL
     Indication: Pulmonary arterial hypertension
     Dosage: UNK
     Dates: start: 20210524
  2. TYVASO [Suspect]
     Active Substance: TREPROSTINIL
     Dosage: 54 ?G, QID
     Dates: start: 2021
  3. TYVASO [Suspect]
     Active Substance: TREPROSTINIL
     Dosage: 18-90 ?G, QID
     Dates: start: 2021, end: 202111
  4. AMBRISENTAN [Concomitant]
     Active Substance: AMBRISENTAN
     Indication: Product used for unknown indication
     Dosage: UNK
     Route: 065
  5. ADEMPAS [Concomitant]
     Active Substance: RIOCIGUAT
     Indication: Product used for unknown indication
     Dosage: UNK
     Route: 065

REACTIONS (14)
  - Gastroenteritis viral [Unknown]
  - Weight decreased [Unknown]
  - Dysgeusia [Not Recovered/Not Resolved]
  - Candida infection [Unknown]
  - Decreased appetite [Not Recovered/Not Resolved]
  - Retching [Unknown]
  - Haemoglobin decreased [Unknown]
  - Throat irritation [Unknown]
  - Oropharyngeal discomfort [Unknown]
  - Oral pain [Unknown]
  - Oropharyngeal pain [Unknown]
  - Nausea [Unknown]
  - Vomiting [Unknown]
  - Off label use [Unknown]

NARRATIVE: CASE EVENT DATE: 20210101
